FAERS Safety Report 9648770 (Version 1)
Quarter: 2013Q4

REPORT INFORMATION
  Report Type: Spontaneous
  Country: US (occurrence: None)
  Receive Date: 20131025
  Receipt Date: 20131025
  Transmission Date: 20140711
  Serious: Yes (Hospitalization)
  Sender: FDA-Public Use
  Company Number: None

PATIENT
  Sex: Male
  Weight: 95.26 kg

DRUGS (8)
  1. REMICADE [Suspect]
     Indication: INFLAMMATION
  2. SULFASALAZINE [Concomitant]
  3. PREDNISONE [Concomitant]
  4. METOPROLOL [Concomitant]
  5. VITAMIN B 12 [Concomitant]
  6. VITAMIN C [Concomitant]
  7. FERROUS SULFATE [Concomitant]
  8. VITAMIN D [Concomitant]

REACTIONS (5)
  - Rash [None]
  - Dizziness [None]
  - Nausea [None]
  - Eye swelling [None]
  - Tachycardia [None]
